FAERS Safety Report 5187287-5 (Version None)
Quarter: 2006Q4

REPORT INFORMATION
  Report Type: 
  Country: None (occurrence: None)
  Receive Date: 20061220
  Receipt Date: 20060920
  Transmission Date: 20070319
  Serious: No
  Sender: FDA-Public Use
  Company Number: US-AMGEN-US194221

PATIENT
  Sex: Female
  Weight: 132.1 kg

DRUGS (8)
  1. ENBREL [Suspect]
     Indication: PSORIATIC ARTHROPATHY
     Route: 058
     Dates: start: 20060912
  2. ARAVA [Concomitant]
     Route: 065
     Dates: start: 20060718, end: 20060801
  3. VERAPAMIL [Concomitant]
     Route: 065
  4. HYDROCHLOROTHIAZIDE [Concomitant]
     Route: 065
  5. METHOTREXATE [Concomitant]
     Route: 065
     Dates: start: 20051121, end: 20060718
  6. VICODIN [Concomitant]
     Route: 065
     Dates: start: 20051121
  7. FOLIC ACID [Concomitant]
     Route: 065
     Dates: start: 20051220
  8. DICLOFENAC SODIUM [Concomitant]
     Route: 065
     Dates: start: 20060522

REACTIONS (2)
  - FATIGUE [None]
  - INJECTION SITE BRUISING [None]
